FAERS Safety Report 5939761-9 (Version None)
Quarter: 2008Q4

REPORT INFORMATION
  Report Type: 
  Country: None (occurrence: None)
  Receive Date: 20081031
  Receipt Date: 20081031
  Transmission Date: 20090506
  Serious: Yes (Other)
  Sender: FDA-Public Use
  Company Number: None

PATIENT
  Sex: Male
  Weight: 108.8633 kg

DRUGS (1)
  1. CIALIS [Suspect]
     Indication: ERECTILE DYSFUNCTION
     Dosage: 20 MG AS NEEDED PO
     Route: 048

REACTIONS (4)
  - DEAFNESS UNILATERAL [None]
  - EYE IRRITATION [None]
  - NERVE INJURY [None]
  - TINNITUS [None]
